FAERS Safety Report 19984352 (Version 1)
Quarter: 2021Q4

REPORT INFORMATION
  Report Type: Spontaneous
  Country: DE (occurrence: DE)
  Receive Date: 20211021
  Receipt Date: 20211021
  Transmission Date: 20220303
  Serious: Yes (Hospitalization)
  Sender: FDA-Public Use
  Company Number: DE-NOVARTISPH-NVSC2021DE240579

PATIENT
  Age: 54 Year
  Sex: Female
  Weight: 52 kg

DRUGS (7)
  1. AMOXICILLIN [Suspect]
     Active Substance: AMOXICILLIN
     Indication: Dermatitis
     Dosage: 600 MG (THERAPY START DATE: 25 AUG 2021)
     Route: 048
     Dates: start: 202108
  2. CLAVULANIC ACID [Suspect]
     Active Substance: CLAVULANIC ACID
     Indication: Inflammation
     Dosage: 125 MG (THERAPY START DATE: 25 AUG 2021)
     Route: 048
     Dates: start: 202108, end: 20210831
  3. CLADRIBINE [Suspect]
     Active Substance: CLADRIBINE
     Indication: Relapsing-remitting multiple sclerosis
     Dosage: UNK (YEAR ONE CYCLE ONE THERAPY: FIRST DOSE OF INTAKE WAS 10 MG ON 28 MAY 2018)
     Route: 048
     Dates: start: 20180528, end: 20180601
  4. CLADRIBINE [Suspect]
     Active Substance: CLADRIBINE
     Dosage: UNK (YEAR ONE CYCLE TWO THERAPY)
     Route: 048
     Dates: start: 20180625, end: 20180629
  5. CLADRIBINE [Suspect]
     Active Substance: CLADRIBINE
     Dosage: UNK (YEAR ONE CYCLE TWO THERAPY)
     Route: 065
     Dates: start: 20180625, end: 20180629
  6. CLADRIBINE [Suspect]
     Active Substance: CLADRIBINE
     Dosage: UNK (YEAR TWO CYCLE ONE THERAPY)
     Route: 048
     Dates: start: 20190610, end: 20190614
  7. CLADRIBINE [Suspect]
     Active Substance: CLADRIBINE
     Dosage: UNK (YEAR TWO CYCLE TWO THERAPY: MOST RECENT DOSE OF INTAKE PRIER TO AE WAS 10 MG ON 19 JUL 2019)
     Route: 048
     Dates: start: 20190715, end: 20190719

REACTIONS (1)
  - Inflammation [Recovered/Resolved]

NARRATIVE: CASE EVENT DATE: 20210823
